FAERS Safety Report 9941889 (Version 1)
Quarter: 2014Q1

REPORT INFORMATION
  Report Type: Report from Study
  Country: US (occurrence: US)
  Receive Date: 20140303
  Receipt Date: 20140303
  Transmission Date: 20141002
  Serious: No
  Sender: FDA-Public Use
  Company Number: US-ABBVIE-13P-163-1042995-00

PATIENT
  Age: 59 Year
  Sex: Female

DRUGS (4)
  1. HUMIRA [Suspect]
     Indication: COLITIS ULCERATIVE
     Dates: start: 20121213
  2. CRESTOR [Concomitant]
     Indication: BLOOD CHOLESTEROL INCREASED
     Dosage: 5MG DAILY
  3. LEXAPRO [Concomitant]
     Indication: DEPRESSION
     Dosage: 30MG DAILY
  4. ATIVAN [Concomitant]
     Indication: INSOMNIA
     Dosage: 2MG DAILY

REACTIONS (1)
  - Injection site rash [Not Recovered/Not Resolved]
